FAERS Safety Report 4444459-2 (Version None)
Quarter: 2004Q3

REPORT INFORMATION
  Report Type: 
  Country: None (occurrence: None)
  Receive Date: 20040902
  Receipt Date: 20040824
  Transmission Date: 20050211
  Serious: Yes (Death)
  Sender: FDA-Public Use
  Company Number: HQWYE844604AUG04

PATIENT
  Age: 6 Week

DRUGS (1)
  1. EFFEXOR XR [Suspect]

REACTIONS (2)
  - LOSS OF CONSCIOUSNESS [None]
  - SUDDEN INFANT DEATH SYNDROME [None]
